FAERS Safety Report 9013031 (Version 2)
Quarter: 2013Q4

REPORT INFORMATION
  Report Type: Spontaneous
  Country: US (occurrence: US)
  Receive Date: 20130114
  Receipt Date: 20131014
  Transmission Date: 20140711
  Serious: Yes (Hospitalization, Disabling, Other)
  Sender: FDA-Public Use
  Company Number: US-009507513-1301USA005110

PATIENT
  Sex: Female
  Weight: 112.47 kg

DRUGS (1)
  1. NUVARING [Suspect]
     Indication: CONTRACEPTION
     Dosage: 3 WEEKS IN AND 1 WEEK OUT
     Route: 067
     Dates: start: 20081031, end: 20111123

REACTIONS (26)
  - Cardiac failure congestive [Unknown]
  - Type 2 diabetes mellitus [Unknown]
  - Essential hypertension [Unknown]
  - Cerebral haemorrhage [Unknown]
  - Transient ischaemic attack [Unknown]
  - Ventricular tachycardia [Unknown]
  - Chest pain [Recovered/Resolved]
  - Migraine [Unknown]
  - Dyspnoea [Unknown]
  - Abortion spontaneous [Unknown]
  - Ectopic pregnancy [Unknown]
  - Gastroenteritis [Unknown]
  - Abdominal pain [Unknown]
  - Pericardial effusion [Unknown]
  - Cholecystitis [Unknown]
  - Diarrhoea [Unknown]
  - Myocarditis [Unknown]
  - Implantable defibrillator insertion [Unknown]
  - Cardiac ventricular thrombosis [Unknown]
  - Ventricular tachycardia [Unknown]
  - Insomnia [Unknown]
  - Dizziness [Unknown]
  - Cardiac ablation [Unknown]
  - Cholecystectomy [Unknown]
  - Cardiomyopathy [Unknown]
  - Breathing-related sleep disorder [Unknown]
